FAERS Safety Report 8004293-3 (Version None)
Quarter: 2011Q4

REPORT INFORMATION
  Report Type: 
  Country: None (occurrence: None)
  Receive Date: 20111223
  Receipt Date: 20111214
  Transmission Date: 20120403
  Serious: No
  Sender: FDA-Public Use
  Company Number: US-BIOGENIDEC-2011BI047876

PATIENT
  Age: 44 Year
  Sex: Female

DRUGS (1)
  1. TYSABRI [Suspect]
     Indication: MULTIPLE SCLEROSIS
     Route: 042
     Dates: start: 20100520, end: 20110915

REACTIONS (4)
  - MUSCULAR WEAKNESS [None]
  - GAIT DISTURBANCE [None]
  - FATIGUE [None]
  - MULTIPLE SCLEROSIS RELAPSE [None]
